FAERS Safety Report 12808513 (Version 1)
Quarter: 2016Q4

REPORT INFORMATION
  Report Type: Spontaneous
  Country: US (occurrence: US)
  Receive Date: 20161004
  Receipt Date: 20161004
  Transmission Date: 20170207
  Serious: Yes (Hospitalization, Congenital Anomaly, Other)
  Sender: FDA-Public Use
  Company Number: US-JNJFOC-20160929897

PATIENT
  Sex: Male
  Weight: 1.41 kg

DRUGS (4)
  1. TOPAMAX [Suspect]
     Active Substance: TOPIRAMATE
     Indication: SEIZURE
     Dosage: MOTHER^S DOSING
     Route: 064
  2. TOPAMAX [Suspect]
     Active Substance: TOPIRAMATE
     Indication: SEIZURE
     Dosage: MOTHER^S DOSING
     Route: 064
     Dates: start: 200402
  3. TOPAMAX [Suspect]
     Active Substance: TOPIRAMATE
     Indication: SEIZURE
     Route: 064
     Dates: start: 2004
  4. TOPAMAX [Suspect]
     Active Substance: TOPIRAMATE
     Indication: SEIZURE
     Dosage: MOTHER^S DOSING
     Route: 064
     Dates: start: 2001

REACTIONS (13)
  - Lip disorder [Unknown]
  - Congenital skin dimples [Unknown]
  - Otitis media chronic [Unknown]
  - Ankyloglossia congenital [Unknown]
  - Premature baby [Not Recovered/Not Resolved]
  - Foetal growth restriction [Unknown]
  - Foetal exposure during pregnancy [Unknown]
  - Atrial septal defect [Unknown]
  - Micrognathia [Unknown]
  - Dysmorphism [Unknown]
  - Congenital anomaly [Unknown]
  - Limb hypoplasia congenital [Unknown]
  - Hypospadias [Unknown]
